FAERS Safety Report 5325744-9 (Version None)
Quarter: 2007Q2

REPORT INFORMATION
  Report Type: 
  Country: None (occurrence: None)
  Receive Date: 20070515
  Receipt Date: 20070508
  Transmission Date: 20071010
  Serious: Yes (Other)
  Sender: FDA-Public Use
  Company Number: JP-MERCK-0702USA04456

PATIENT
  Age: 63 Year
  Sex: Male

DRUGS (3)
  1. PROPECIA [Suspect]
     Indication: MALE PATTERN BALDNESS
     Route: 048
     Dates: start: 20061220, end: 20070220
  2. TIGASON [Suspect]
     Indication: PSORIASIS
     Route: 048
     Dates: start: 20030201, end: 20070220
  3. DIFLAL [Concomitant]
     Indication: PSORIASIS
     Route: 061

REACTIONS (3)
  - BLISTER [None]
  - GENERALISED ERYTHEMA [None]
  - URINE OUTPUT DECREASED [None]
